FAERS Safety Report 9435304 (Version 1)
Quarter: 2013Q3

REPORT INFORMATION
  Report Type: Spontaneous
  Country: JP (occurrence: JP)
  Receive Date: 20130801
  Receipt Date: 20130801
  Transmission Date: 20140515
  Serious: Yes (Hospitalization)
  Sender: FDA-Public Use
  Company Number: JP-BAYER-2013-087637

PATIENT
  Age: 76 Year
  Sex: Male

DRUGS (1)
  1. BAYASPIRIN [Suspect]
     Indication: CEREBROVASCULAR ACCIDENT PROPHYLAXIS
     Dosage: UNK
     Route: 048
     Dates: start: 2007, end: 201210

REACTIONS (3)
  - Small intestine ulcer [Recovering/Resolving]
  - Small intestinal stenosis [None]
  - Small intestinal stenosis [None]
